FAERS Safety Report 6316840-8 (Version None)
Quarter: 2009Q3

REPORT INFORMATION
  Report Type: 
  Country: None (occurrence: None)
  Receive Date: 20090820
  Receipt Date: 20090811
  Transmission Date: 20100115
  Serious: Yes (Hospitalization, Other)
  Sender: FDA-Public Use
  Company Number: US-ROCHE-649970

PATIENT
  Age: 48 Year
  Sex: Male

DRUGS (6)
  1. PEGASYS [Suspect]
     Indication: HEPATITIS C
     Route: 065
     Dates: start: 20080801, end: 20090710
  2. COPEGUS [Suspect]
     Indication: HEPATITIS C
     Route: 065
     Dates: start: 20080801, end: 20090710
  3. METFORMIN [Concomitant]
  4. GLYBURIDE [Concomitant]
     Dosage: DRUG: GLYBERIDE
  5. BUPROPION [Concomitant]
     Dosage: DRUG REPORTED AS BUPROPINE
  6. QUETIAPINE [Concomitant]

REACTIONS (2)
  - CEREBROVASCULAR ACCIDENT [None]
  - PAPILLOEDEMA [None]
